FAERS Safety Report 11042963 (Version 1)
Quarter: 2015Q2

REPORT INFORMATION
  Report Type: Spontaneous
  Country: TW (occurrence: TW)
  Receive Date: 20150417
  Receipt Date: 20150417
  Transmission Date: 20150821
  Serious: Yes (Death, Hospitalization, Other)
  Sender: FDA-Public Use
  Company Number: TW-ROCHE-1386645

PATIENT
  Sex: Male

DRUGS (4)
  1. PEGASYS [Suspect]
     Active Substance: PEGINTERFERON ALFA-2A
     Indication: HEPATITIS C
     Route: 058
     Dates: start: 201302, end: 201308
  2. ROBATROL [Suspect]
     Active Substance: RIBAVIRIN
     Dosage: DAILY
     Route: 048
     Dates: start: 201311, end: 201404
  3. PEGASYS [Suspect]
     Active Substance: PEGINTERFERON ALFA-2A
     Route: 058
     Dates: start: 201311, end: 201404
  4. ROBATROL [Suspect]
     Active Substance: RIBAVIRIN
     Indication: HEPATITIS C
     Dosage: DAILY
     Route: 048
     Dates: start: 201302, end: 201308

REACTIONS (5)
  - Sepsis [Recovering/Resolving]
  - Thrombocytopenia [Unknown]
  - Death [Fatal]
  - Colitis ischaemic [Recovering/Resolving]
  - Hepatitis C [Unknown]

NARRATIVE: CASE EVENT DATE: 201311
